FAERS Safety Report 7025188-8 (Version None)
Quarter: 2010Q4

REPORT INFORMATION
  Report Type: 
  Country: None (occurrence: None)
  Receive Date: 20101001
  Receipt Date: 20100921
  Transmission Date: 20110411
  Serious: Yes (Other)
  Sender: FDA-Public Use
  Company Number: US-PFIZER INC-2010118496

PATIENT
  Sex: Female
  Weight: 54 kg

DRUGS (10)
  1. CHANTIX [Suspect]
     Indication: SMOKING CESSATION THERAPY
     Dosage: UNK
     Dates: start: 20100806
  2. LYRICA [Suspect]
     Indication: PETIT MAL EPILEPSY
     Dosage: 300 MG, 4X/DAY
  3. RELISTOR [Suspect]
     Indication: CONSTIPATION
     Dosage: 12 MG, ALTERNATE DAY
     Route: 058
     Dates: start: 20100903
  4. RELISTOR [Suspect]
     Dosage: UNK
     Dates: start: 20100903
  5. LUNESTA [Concomitant]
     Dosage: 3 MG, 1X/DAY
  6. CYMBALTA [Concomitant]
     Dosage: 120 MG, 1X/DAY
  7. DURAGESIC-100 [Concomitant]
     Dosage: 50 UG, EVERY 48 HOURS
     Route: 061
  8. DAYPRO [Concomitant]
     Dosage: 1200 MG, 1X/DAY
  9. NORCO [Concomitant]
     Dosage: 20/650 MG, 4X/DAY AS NEEDED
  10. TOPAMAX [Concomitant]
     Indication: PETIT MAL EPILEPSY
     Dosage: 100 MG, 3X/DAY

REACTIONS (4)
  - CONSTIPATION [None]
  - DEVICE BREAKAGE [None]
  - FALL [None]
  - GRAND MAL CONVULSION [None]
